FAERS Safety Report 4490055-0 (Version None)
Quarter: 2004Q4

REPORT INFORMATION
  Report Type: 
  Country: None (occurrence: None)
  Receive Date: 20041027
  Receipt Date: 20041018
  Transmission Date: 20050328
  Serious: Yes (Death)
  Sender: FDA-Public Use
  Company Number: 2004-BP-10058RO

PATIENT
  Age: 67 Year
  Sex: Male

DRUGS (19)
  1. DEXAMETHASONE [Suspect]
     Indication: MULTIPLE MYELOMA
     Dosage: CYCLIC:  50 MG/DAY, PO
     Route: 048
     Dates: start: 20010907, end: 20010924
  2. GENASENSE [Suspect]
     Indication: MULTIPLE MYELOMA
     Dosage: CYCLIC:  609 MG/DAY, IV
     Route: 042
     Dates: start: 20010904, end: 20010925
  3. GENASENSE [Suspect]
  4. OXYCODONE /ACETAMINOPHEN (OXYCOCET) [Concomitant]
  5. PANTOPRAZOLE (PANTOPRAZOLE) [Concomitant]
  6. ALLOPURINOL [Concomitant]
  7. TRIMETHOPRIM W/SULFAMETHOXAZOLE (BACTRIM) [Concomitant]
  8. MAGNESIUM HYDROXIDE (MAGNESIUM HYDROXIDE) [Concomitant]
  9. EPOETIN ALFA (EPOETIN ALFA) [Concomitant]
  10. NYSTATIN [Concomitant]
  11. FLUCONAZOLE [Concomitant]
  12. MUPIROCIN (MUPIROCIN) [Concomitant]
  13. ACYCLOVIR [Concomitant]
  14. PHENYLEPHRINE (PHENYLEPHRINE) [Concomitant]
  15. ACETAMINOPHEN W/CODEINE (GALENIC/PARACETAMOL/CODEINE/) [Concomitant]
  16. PIPERACILLIN [Concomitant]
  17. TAZOBACTAM SODIUM (TAZOBACTAM SODIUM) [Concomitant]
  18. FUROSEMIDE [Concomitant]
  19. PHYTONADIONE [Concomitant]

REACTIONS (5)
  - DRUG INEFFECTIVE [None]
  - EPISTAXIS [None]
  - MALIGNANT NEOPLASM PROGRESSION [None]
  - MOOD SWINGS [None]
  - MULTIPLE MYELOMA [None]
